FAERS Safety Report 23233262 (Version 1)
Quarter: 2023Q4

REPORT INFORMATION
  Report Type: Report from Study
  Country: US (occurrence: US)
  Receive Date: 20231128
  Receipt Date: 20231128
  Transmission Date: 20240110
  Serious: Yes (Death, Other)
  Sender: FDA-Public Use
  Company Number: US-GILEAD-2023-0652422

PATIENT

DRUGS (2)
  1. AZTREONAM LYSINE [Suspect]
     Active Substance: AZTREONAM LYSINE
     Indication: Lung disorder
     Dosage: 75 MG, TID (FOR 28 DAYS ON, THEN 28 DAYS OFF)
     Route: 055
     Dates: start: 20230822
  2. BACLOFEN [Concomitant]
     Active Substance: BACLOFEN

REACTIONS (2)
  - Death [Fatal]
  - Off label use [Unknown]
